FAERS Safety Report 9238369 (Version 1)
Quarter: 2013Q1

REPORT INFORMATION
  Report Type: Spontaneous
  Country: US (occurrence: None)
  Receive Date: 20121106
  Receipt Date: 20121106
  Transmission Date: 20140127
  Serious: No
  Sender: FDA-Public Use
  Company Number: 1000037655

PATIENT
  Age: 66 Year
  Sex: Female
  Weight: 62 kg

DRUGS (4)
  1. DALIRESP (ROFLUMILAST) [Suspect]
     Indication: CHRONIC OBSTRUCTIVE PULMONARY DISEASE
     Dosage: 500 MCG (500 MCG, 1 IN 1 D, ORAL
     Route: 048
     Dates: start: 20120410
  2. DALIRESP (ROFLUMILAST) [Suspect]
     Indication: ASTHMA
     Dosage: 500 MCG (500 MCG, 1 IN 1 D, ORAL
     Route: 048
     Dates: start: 20120410
  3. SYMBICORT (BUDEPROPION W/ FORMOTEROL FUMARATE) (BUDESONIDE W/ FORMOTEROL FUMARATE) [Concomitant]
  4. PROAIR (ALBUTEROL SULFATE) (ALBUTEROL SULFATE) [Concomitant]

REACTIONS (3)
  - Weight decreased [None]
  - Pruritus [None]
  - Decreased appetite [None]
